FAERS Safety Report 21918912 (Version 1)
Quarter: 2023Q1

REPORT INFORMATION
  Report Type: Report from Study
  Country: CA (occurrence: CA)
  Receive Date: 20230127
  Receipt Date: 20230127
  Transmission Date: 20230418
  Serious: Yes (Other)
  Sender: FDA-Public Use
  Company Number: CA-ABBVIE-4284016

PATIENT
  Sex: Male

DRUGS (1)
  1. HUMIRA [Suspect]
     Active Substance: ADALIMUMAB
     Indication: Juvenile idiopathic arthritis
     Dosage: MISSED 2 DOSE
     Route: 058
     Dates: start: 202010

REACTIONS (2)
  - Drug abuse [Unknown]
  - Unevaluable event [Unknown]
